FAERS Safety Report 10680287 (Version 3)
Quarter: 2017Q4

REPORT INFORMATION
  Report Type: Spontaneous
  Country: US (occurrence: US)
  Receive Date: 20141229
  Receipt Date: 20171221
  Transmission Date: 20180320
  Serious: Yes (Hospitalization)
  Sender: FDA-Public Use
  Company Number: US-SA-2013SA126373

PATIENT
  Age: 71 Year
  Sex: Male
  Weight: 86.18 kg

DRUGS (6)
  1. PANTOPRAZOLE [Concomitant]
     Active Substance: PANTOPRAZOLE
  2. LOVAZA [Concomitant]
     Active Substance: OMEGA-3-ACID ETHYL ESTERS
  3. ASPIRIN. [Concomitant]
     Active Substance: ASPIRIN
     Dates: start: 2001
  4. TAMSULOSIN [Concomitant]
     Active Substance: TAMSULOSIN
  5. LIPITOR [Concomitant]
     Active Substance: ATORVASTATIN CALCIUM
  6. PLAVIX [Suspect]
     Active Substance: CLOPIDOGREL BISULFATE
     Indication: STENT PLACEMENT
     Route: 048
     Dates: start: 2000, end: 200012

REACTIONS (9)
  - Blood pressure decreased [Unknown]
  - Gastrointestinal haemorrhage [Unknown]
  - Anaemia [Unknown]
  - Erosive oesophagitis [Unknown]
  - Injury [Unknown]
  - Syncope [Unknown]
  - Duodenal ulcer [Unknown]
  - Chest discomfort [Unknown]
  - Hyperhidrosis [Unknown]

NARRATIVE: CASE EVENT DATE: 20111229
